FAERS Safety Report 14610224 (Version 2)
Quarter: 2018Q1

REPORT INFORMATION
  Report Type: Spontaneous
  Country: BR (occurrence: BR)
  Receive Date: 20180307
  Receipt Date: 20180314
  Transmission Date: 20180509
  Serious: Yes (Hospitalization)
  Sender: FDA-Public Use
  Company Number: BR-SEATTLE GENETICS-2018SGN00436

PATIENT
  Age: 71 Year
  Sex: Female

DRUGS (29)
  1. PIPERACILLIN SODIUM, SULBACTAM SODIUM [Concomitant]
     Dosage: 405 G, UNK
     Route: 042
     Dates: start: 20170901
  2. MORPHINE SULFATE. [Concomitant]
     Active Substance: MORPHINE SULFATE
     Dosage: 2 MG, UNK
     Dates: start: 20170831
  3. FENTANYL. [Concomitant]
     Active Substance: FENTANYL
     Dosage: UNK MG, UNK
     Route: 061
     Dates: start: 20170901
  4. HEXAMIDINE ISETIONATE, TETRACAINE HYDROCHLORIDE [Concomitant]
     Dosage: UNK
     Route: 061
     Dates: start: 20170824
  5. METAMIZOLE SODIUM [Concomitant]
     Active Substance: METAMIZOLE SODIUM
     Dosage: 1 G, Q6HR
     Route: 042
     Dates: start: 20170905
  6. HYDROXYCHLOROQUINE SULFATE. [Concomitant]
     Active Substance: HYDROXYCHLOROQUINE SULFATE
     Dosage: 200 MG, Q3WEEKS
     Dates: start: 20170823
  7. ADCETRIS [Suspect]
     Active Substance: BRENTUXIMAB VEDOTIN
     Indication: HODGKIN^S DISEASE
     Dosage: 90 MG, UNK
     Route: 065
     Dates: start: 20170906
  8. IPRATROPIUM BROMIDE. [Concomitant]
     Active Substance: IPRATROPIUM BROMIDE
     Dosage: 20 ML, UNK
     Route: 055
     Dates: start: 20170828
  9. ONDANSETRON HYDROCHLORIDE. [Concomitant]
     Active Substance: ONDANSETRON HYDROCHLORIDE
     Dosage: 8 MG, Q8HR
     Route: 042
     Dates: start: 20170904
  10. PANTOPRAZOLE [Concomitant]
     Active Substance: PANTOPRAZOLE
     Dosage: 40 MG, BID
     Dates: start: 20170824
  11. ACICLOVIR [Concomitant]
     Active Substance: ACYCLOVIR
     Dosage: 500 MG, UNK
     Route: 042
     Dates: start: 20170831
  12. ALLOPURINOL. [Concomitant]
     Active Substance: ALLOPURINOL
     Dosage: 300 MG, QD
     Route: 048
     Dates: start: 20170826
  13. FLUCONAZOLE. [Concomitant]
     Active Substance: FLUCONAZOLE
     Dosage: 200 MG, QD
     Route: 042
     Dates: start: 20170830
  14. FLUCONAZOLE. [Concomitant]
     Active Substance: FLUCONAZOLE
     Dosage: UNK
  15. TIOTROPIUM [Concomitant]
     Active Substance: TIOTROPIUM
     Dosage: UNK
     Route: 055
     Dates: start: 20170821
  16. METAMIZOLE SODIUM [Concomitant]
     Active Substance: METAMIZOLE SODIUM
     Dosage: UNK
     Route: 042
     Dates: start: 20170824
  17. POTASSIUM CHLORIDE. [Concomitant]
     Active Substance: POTASSIUM CHLORIDE
     Dosage: UNK
     Route: 048
     Dates: start: 20170905
  18. DIPHENHYDRAMINE. [Concomitant]
     Active Substance: DIPHENHYDRAMINE
     Dosage: 25 MG, QD
     Route: 042
     Dates: start: 20170828
  19. DIPHENHYDRAMINE. [Concomitant]
     Active Substance: DIPHENHYDRAMINE
     Dosage: 50 MG, QD
     Route: 042
  20. METOCLOPRAMIDE. [Concomitant]
     Active Substance: METOCLOPRAMIDE
     Dosage: 10 MG, UNK
     Dates: start: 20170904
  21. HYDROCORTISONE SODIUM SUCCINATE [Concomitant]
     Active Substance: HYDROCORTISONE SODIUM SUCCINATE
     Dosage: 100 MG, BID
     Route: 042
     Dates: start: 20170904
  22. HYDROCORTISONE SODIUM SUCCINATE [Concomitant]
     Active Substance: HYDROCORTISONE SODIUM SUCCINATE
     Dosage: 300 MG, UNK
     Route: 042
     Dates: start: 20170906
  23. XYLITOL [Concomitant]
     Active Substance: XYLITOL
     Dosage: UNK
     Dates: start: 20170830
  24. CITALOPRAM HYDROBROMIDE. [Concomitant]
     Active Substance: CITALOPRAM HYDROBROMIDE
     Dosage: 20 MG, QD
     Route: 048
     Dates: start: 20170824, end: 20170824
  25. HYOSCINE [Concomitant]
     Active Substance: SCOPOLAMINE
     Dosage: UNK
     Route: 042
     Dates: start: 20170824
  26. DEFLAZACORT [Concomitant]
     Active Substance: DEFLAZACORT
     Dosage: 12 MG, QD
     Route: 048
     Dates: start: 20170822
  27. DIPHENHYDRAMINE. [Concomitant]
     Active Substance: DIPHENHYDRAMINE
     Dosage: 50 MG, QD
     Route: 042
  28. NYSTATIN. [Concomitant]
     Active Substance: NYSTATIN
     Dosage: 10 MG, UNK
     Route: 048
     Dates: start: 20170823
  29. FLUTICASONE PROPIONATE, SALMETEROL XINAFOATE [Concomitant]
     Dosage: UNK
     Route: 055
     Dates: start: 20170822

REACTIONS (2)
  - Oxygen saturation decreased [Unknown]
  - Respiratory disorder [Unknown]

NARRATIVE: CASE EVENT DATE: 20170906
